FAERS Safety Report 8009546-0 (Version None)
Quarter: 2011Q4

REPORT INFORMATION
  Report Type: 
  Country: None (occurrence: None)
  Receive Date: 20111227
  Receipt Date: 20111215
  Transmission Date: 20120403
  Serious: Yes (Other)
  Sender: FDA-Public Use
  Company Number: US-ASTRAZENECA-2011SE76172

PATIENT
  Sex: Female

DRUGS (1)
  1. CRESTOR [Suspect]
     Route: 048

REACTIONS (5)
  - CARDIAC DISORDER [None]
  - ILL-DEFINED DISORDER [None]
  - MALAISE [None]
  - BRONCHITIS [None]
  - NASOPHARYNGITIS [None]
